FAERS Safety Report 19710254 (Version 2)
Quarter: 2021Q3

REPORT INFORMATION
  Report Type: Spontaneous
  Country: IT (occurrence: IT)
  Receive Date: 20210816
  Receipt Date: 20210915
  Transmission Date: 20211014
  Serious: Yes (Hospitalization)
  Sender: FDA-Public Use
  Company Number: IT-ORGANON-O2108ITA000779

PATIENT
  Age: 56 Year
  Sex: Female
  Weight: 100 kg

DRUGS (5)
  1. ZIRTEC [Concomitant]
     Active Substance: CETIRIZINE HYDROCHLORIDE
     Dosage: 10 MILLIGRAM, QD
     Route: 048
  2. AULIN [Concomitant]
     Active Substance: NIMESULIDE
     Dosage: UNK
     Route: 048
  3. EUTIROX [Concomitant]
     Active Substance: LEVOTHYROXINE SODIUM
     Dosage: 100 MICROGRAM, QD
  4. IRBESARTAN HYDROCHLOROTHIAZIDE [Concomitant]
     Active Substance: HYDROCHLOROTHIAZIDE\IRBESARTAN
     Dosage: 300 MILLIGRAM, QD
     Route: 048
  5. REMERON [Suspect]
     Active Substance: MIRTAZAPINE
     Indication: DEPRESSION
     Dosage: 1 DOSAGE FORM, QD, FORMULATION REPORTED AS CAPSULE, HARD
     Route: 048
     Dates: start: 20210712, end: 20210712

REACTIONS (2)
  - Transient ischaemic attack [Recovered/Resolved with Sequelae]
  - Epilepsy [Recovered/Resolved with Sequelae]

NARRATIVE: CASE EVENT DATE: 20210713
